FAERS Safety Report 4445613-6 (Version None)
Quarter: 2004Q3

REPORT INFORMATION
  Report Type: 
  Country: None (occurrence: None)
  Receive Date: 20040802
  Receipt Date: 20040528
  Transmission Date: 20050211
  Serious: No
  Sender: FDA-Public Use
  Company Number: 2004-116797-NL

PATIENT
  Age: 28 Year
  Sex: Female

DRUGS (11)
  1. NUVARING [Suspect]
     Indication: CONTRACEPTION
     Dosage: DF DAILY, VAGINAL
     Route: 067
     Dates: start: 20020901, end: 20040522
  2. NUVARING [Suspect]
     Indication: OVARIAN CYST
     Dosage: DF DAILY, VAGINAL
     Route: 067
     Dates: start: 20020901, end: 20040522
  3. NUVARING [Suspect]
     Indication: CONTRACEPTION
     Dosage: DF DAILY, VAGINAL
     Route: 067
     Dates: start: 20040601, end: 20040601
  4. NUVARING [Suspect]
     Indication: OVARIAN CYST
     Dosage: DF DAILY, VAGINAL
     Route: 067
     Dates: start: 20040601, end: 20040601
  5. TEGRETOL [Concomitant]
  6. ZYRTEC [Concomitant]
  7. XANAX [Concomitant]
  8. ALLEVE , TYLENOL OR ADVIL [Concomitant]
  9. FISH OIL [Concomitant]
  10. VITAMIN C [Concomitant]
  11. VITAMIN B COMPLEX CAP [Concomitant]

REACTIONS (5)
  - ARTHRALGIA [None]
  - GENITAL PRURITUS FEMALE [None]
  - MUSCULOSKELETAL STIFFNESS [None]
  - MYALGIA [None]
  - OLIGOMENORRHOEA [None]
